FAERS Safety Report 4336464-1 (Version None)
Quarter: 2004Q2

REPORT INFORMATION
  Report Type: 
  Country: None (occurrence: None)
  Receive Date: 20040407
  Receipt Date: 20040329
  Transmission Date: 20050107
  Serious: Yes (Hospitalization)
  Sender: FDA-Public Use
  Company Number: CEL-2004-00419-ROC

PATIENT
  Age: 62 Year
  Sex: Male

DRUGS (2)
  1. TUSSIONEX [Suspect]
     Dosage: 120ML, OVER 2-3 DAYS, PO
     Route: 048
     Dates: start: 20040301
  2. CARDIAC THERAPY [Concomitant]

REACTIONS (3)
  - HYPOTENSION [None]
  - LETHARGY [None]
  - OVERDOSE [None]
